FAERS Safety Report 17822041 (Version 1)
Quarter: 2020Q2

REPORT INFORMATION
  Report Type: Spontaneous
  Country: DE (occurrence: DE)
  Receive Date: 20200526
  Receipt Date: 20200526
  Transmission Date: 20200714
  Serious: No
  Sender: FDA-Public Use
  Company Number: DE-TOLMAR, INC.-19DE000296

PATIENT
  Age: 70 Year
  Sex: Male
  Weight: 93 kg

DRUGS (6)
  1. ELIGARD [Suspect]
     Active Substance: LEUPROLIDE ACETATE
     Indication: PROSTATE CANCER
     Dosage: 7.5 MILLIGRAM, 1/MONTH
     Route: 065
     Dates: start: 20170125
  2. ELIGARD [Suspect]
     Active Substance: LEUPROLIDE ACETATE
     Dosage: (PARTIALLY 30% OF DOSE), 1/MONTH
     Route: 065
     Dates: start: 20190726
  3. ELIGARD [Suspect]
     Active Substance: LEUPROLIDE ACETATE
     Dosage: 7.5 MILLIGRAM, 1/MONTH
     Route: 065
     Dates: start: 201707
  4. ELIGARD [Suspect]
     Active Substance: LEUPROLIDE ACETATE
     Dosage: 7.5 MILLIGRAM, 1/MONTH
     Route: 065
     Dates: start: 20190628
  5. ZOLEDRON [Concomitant]
     Active Substance: ZOLEDRONIC ACID
     Indication: PRODUCT USED FOR UNKNOWN INDICATION
  6. ELIGARD [Suspect]
     Active Substance: LEUPROLIDE ACETATE
     Dosage: 7.5 MILLIGRAM, 1/MONTH
     Route: 065
     Dates: start: 20190816

REACTIONS (5)
  - Extra dose administered [Unknown]
  - Needle issue [None]
  - Product administration error [None]
  - Accidental exposure to product [Unknown]
  - Product leakage [None]

NARRATIVE: CASE EVENT DATE: 20190726
